FAERS Safety Report 13662606 (Version 1)
Quarter: 2017Q2

REPORT INFORMATION
  Report Type: Spontaneous
  Country: US (occurrence: US)
  Receive Date: 20170616
  Receipt Date: 20170616
  Transmission Date: 20170830
  Serious: Yes (Hospitalization)
  Sender: FDA-Public Use
  Company Number: None

PATIENT
  Age: 65 Year
  Sex: Female
  Weight: 80.2 kg

DRUGS (1)
  1. MEMANTINE HYDROCHLORIDE. [Suspect]
     Active Substance: MEMANTINE HYDROCHLORIDE
     Dates: end: 20170606

REACTIONS (5)
  - Fall [None]
  - Asthenia [None]
  - Grip strength decreased [None]
  - Blood test abnormal [None]
  - Dyskinesia [None]

NARRATIVE: CASE EVENT DATE: 20170603
